FAERS Safety Report 5806574-8 (Version None)
Quarter: 2008Q3

REPORT INFORMATION
  Report Type: 
  Country: None (occurrence: None)
  Receive Date: 20080710
  Receipt Date: 20080625
  Transmission Date: 20090109
  Serious: Yes (Other)
  Sender: FDA-Public Use
  Company Number: JP-GENENTECH-263867

PATIENT
  Age: 54 Year
  Sex: Male

DRUGS (4)
  1. AVASTIN [Suspect]
     Indication: LARGE INTESTINE CARCINOMA
     Dosage: 5 MG/KG, Q2W
     Route: 041
     Dates: start: 20080311
  2. OXALIPLATIN [Suspect]
     Indication: LARGE INTESTINE CARCINOMA
  3. FLUOROURACIL [Suspect]
     Indication: LARGE INTESTINE CARCINOMA
  4. CALCIUM LEVOFOLINATE [Suspect]
     Indication: LARGE INTESTINE CARCINOMA

REACTIONS (1)
  - ANAPHYLACTIC SHOCK [None]
